FAERS Safety Report 8178041-0 (Version None)
Quarter: 2012Q1

REPORT INFORMATION
  Report Type: 
  Country: None (occurrence: None)
  Receive Date: 20120301
  Receipt Date: 20120222
  Transmission Date: 20120608
  Serious: Yes (Other)
  Sender: FDA-Public Use
  Company Number: AU-BRISTOL-MYERS SQUIBB COMPANY-16413924

PATIENT
  Age: 84 Year
  Sex: Male

DRUGS (1)
  1. SPRYCEL [Suspect]
     Dates: start: 20120103

REACTIONS (1)
  - DEMENTIA [None]
